FAERS Safety Report 11757158 (Version 3)
Quarter: 2016Q1

REPORT INFORMATION
  Report Type: Spontaneous
  Country: US (occurrence: US)
  Receive Date: 20151120
  Receipt Date: 20160114
  Transmission Date: 20160525
  Serious: Yes (Hospitalization, Other)
  Sender: FDA-Public Use
  Company Number: US-009507513-1511USA007645

PATIENT
  Age: 47 Year
  Sex: Male

DRUGS (4)
  1. TRAZODONE HYDROCHLORIDE. [Suspect]
     Active Substance: TRAZODONE HYDROCHLORIDE
     Dosage: 9000 MG, UNK
     Route: 048
  2. HYDROXYZINE HYDROCHLORIDE. [Suspect]
     Active Substance: HYDROXYZINE HYDROCHLORIDE
     Dosage: 4500 MG, UNK
  3. PRINIVIL [Suspect]
     Active Substance: LISINOPRIL
     Dosage: 300 MG, UNK
     Route: 048
  4. AMLODIPINE [Suspect]
     Active Substance: AMLODIPINE BESYLATE
     Dosage: 300 MG, UNK

REACTIONS (2)
  - Intentional overdose [Recovered/Resolved]
  - Shock [Recovered/Resolved]
